FAERS Safety Report 11999427 (Version 1)
Quarter: 2016Q1

REPORT INFORMATION
  Report Type: Spontaneous
  Country: US (occurrence: None)
  Receive Date: 20160203
  Receipt Date: 20160203
  Transmission Date: 20160526
  Serious: Yes (Disabling)
  Sender: FDA-Public Use
  Company Number: None

PATIENT
  Age: 60 Year
  Sex: Female
  Weight: 52.16 kg

DRUGS (14)
  1. HYDROCORDONE [Suspect]
     Active Substance: HYDROCODONE
     Dosage: 2 PILLS
     Route: 048
     Dates: end: 201511
  2. VENTOLIN [Concomitant]
     Active Substance: ALBUTEROL SULFATE
  3. ARIPIPRAZOLE. [Concomitant]
     Active Substance: ARIPIPRAZOLE
  4. TRAZODONE [Concomitant]
     Active Substance: TRAZODONE HYDROCHLORIDE
  5. GLIPIZIDE. [Concomitant]
     Active Substance: GLIPIZIDE
  6. FERROUS SULFATE [Concomitant]
     Active Substance: FERROUS SULFATE\FERROUS SULFATE, DRIED
  7. PROPALOL [Concomitant]
  8. THIAMINE. [Concomitant]
     Active Substance: THIAMINE
  9. SEROQUEL [Suspect]
     Active Substance: QUETIAPINE FUMARATE
     Dosage: 2 PILLS
     Route: 048
     Dates: end: 201511
  10. PRILOSEC [Concomitant]
     Active Substance: OMEPRAZOLE MAGNESIUM
  11. ZYPREXA [Suspect]
     Active Substance: OLANZAPINE
     Dosage: 2 PILLS
     Route: 048
     Dates: end: 201511
  12. METFORMIN [Concomitant]
     Active Substance: METFORMIN HYDROCHLORIDE
  13. RANITINE [Concomitant]
  14. CALCIUM+D [Concomitant]

REACTIONS (1)
  - Parkinson^s disease [None]

NARRATIVE: CASE EVENT DATE: 201511
